FAERS Safety Report 17048248 (Version 4)
Quarter: 2020Q1

REPORT INFORMATION
  Report Type: Spontaneous
  Country: US (occurrence: US)
  Receive Date: 20191119
  Receipt Date: 20200320
  Transmission Date: 20200409
  Serious: Yes (Hospitalization, Other)
  Sender: FDA-Public Use
  Company Number: US-AMNEAL PHARMACEUTICALS-2019-AMRX-02644

PATIENT
  Age: 63 Year
  Sex: Female
  Weight: 58 kg

DRUGS (6)
  1. RYTARY [Suspect]
     Active Substance: CARBIDOPA\LEVODOPA
     Dosage: 23.75/95 MG, 6 CAPSULES, DAILY (2 CAPSULE 1ST DOSE, 1 CAPSULE 2ND, 3RD, 4TH AND 5TH DOSE)
     Route: 048
  2. RYTARY [Suspect]
     Active Substance: CARBIDOPA\LEVODOPA
     Dosage: 23.75-95MG; 2 CAPSULES AT 7AM, 1 CAPSULE AT 11AM, 3PM, 7PM,10PM, 3AM
     Route: 048
     Dates: start: 20200309
  3. RYTARY [Suspect]
     Active Substance: CARBIDOPA\LEVODOPA
     Indication: PARKINSON^S DISEASE
     Dosage: 23.75-95MG; 4 CAPSULES, 4 /DAY
     Route: 048
     Dates: start: 201905
  4. RYTARY [Suspect]
     Active Substance: CARBIDOPA\LEVODOPA
     Dosage: 36.25/ 145MG, 7 CAPSULES, DAILY (1 CAPSULE 1ST DOSE, 2 CAPSULES 2ND, 3RD AND 4TH DOSE)
     Route: 048
  5. RYTARY [Suspect]
     Active Substance: CARBIDOPA\LEVODOPA
     Dosage: 23.75-95MG; 1 CAPSULE DURING NIGHT
     Route: 048
     Dates: start: 201905
  6. RYTARY [Suspect]
     Active Substance: CARBIDOPA\LEVODOPA
     Dosage: 36.25/ 145MG, 2 CAPSULES 5 TIMES DAILY AND 1 CAPSULE IN THE MIDDLE OF THE NIGHT
     Route: 048
     Dates: start: 20200309

REACTIONS (3)
  - Dizziness [Recovering/Resolving]
  - Lower limb fracture [Recovering/Resolving]
  - Fall [Recovering/Resolving]

NARRATIVE: CASE EVENT DATE: 20191021
